FAERS Safety Report 11342522 (Version 1)
Quarter: 2015Q3

REPORT INFORMATION
  Report Type: Spontaneous
  Country: US (occurrence: US)
  Receive Date: 20150805
  Receipt Date: 20150805
  Transmission Date: 20151125
  Serious: No
  Sender: FDA-Public Use
  Company Number: US-TEVA-583255USA

PATIENT
  Sex: Male

DRUGS (1)
  1. PROVIGIL [Suspect]
     Active Substance: MODAFINIL
     Indication: FATIGUE
     Dosage: 400 MILLIGRAM DAILY; 3 TABLETS IN THE MORNING AND 1 AT NOON
     Route: 065
     Dates: start: 2009

REACTIONS (6)
  - Fatigue [Unknown]
  - Product use issue [Unknown]
  - Drug effect decreased [Unknown]
  - Activities of daily living impaired [Unknown]
  - Feeling abnormal [Unknown]
  - Product use issue [Unknown]

NARRATIVE: CASE EVENT DATE: 2009
